FAERS Safety Report 8960468 (Version 1)
Quarter: 2012Q4

REPORT INFORMATION
  Report Type: Spontaneous
  Country: CA (occurrence: None)
  Receive Date: 20121211
  Receipt Date: 20121211
  Transmission Date: 20130627
  Serious: Yes (Hospitalization)
  Sender: FDA-Public Use
  Company Number: None

PATIENT
  Sex: Male
  Weight: 83 kg

DRUGS (2)
  1. IRINOTECAN [Suspect]
  2. TEMOZOLOMIDE [Suspect]

REACTIONS (10)
  - White blood cell count decreased [None]
  - Haemoglobin decreased [None]
  - Lymphocyte count decreased [None]
  - Neutrophil count decreased [None]
  - Fatigue [None]
  - Asthenia [None]
  - Abdominal pain [None]
  - Diarrhoea [None]
  - Platelet count decreased [None]
  - Pyrexia [None]
